FAERS Safety Report 7420379-6 (Version None)
Quarter: 2011Q2

REPORT INFORMATION
  Report Type: 
  Country: None (occurrence: None)
  Receive Date: 20110418
  Receipt Date: 20110412
  Transmission Date: 20111010
  Serious: Yes (Hospitalization)
  Sender: FDA-Public Use
  Company Number: PHHO2011HU06522

PATIENT
  Sex: Female
  Weight: 74 kg

DRUGS (11)
  1. TRASTUZUMAB [Concomitant]
  2. PANTOPRAZOLE SODIUM [Concomitant]
  3. ALPRAZOLAM [Concomitant]
  4. ZOLEDRONIC ACID [Suspect]
     Indication: METASTASES TO BONE
     Dosage: UNK
     Route: 042
     Dates: start: 20100407
  5. PACLITAXEL [Concomitant]
  6. VINPOCETINE [Concomitant]
  7. ESCITALOPRAM [Concomitant]
  8. LEVOTHYROXINE SODIUM [Concomitant]
  9. CARVEDILOL [Concomitant]
  10. BETAHISTINE [Concomitant]
  11. AMLODIPINE [Concomitant]

REACTIONS (1)
  - TOOTH ABSCESS [None]
